FAERS Safety Report 12790232 (Version 2)
Quarter: 2016Q4

REPORT INFORMATION
  Report Type: Spontaneous
  Country: IT (occurrence: IT)
  Receive Date: 20160928
  Receipt Date: 20161012
  Transmission Date: 20170207
  Serious: Yes (Disabling, Other)
  Sender: FDA-Public Use
  Company Number: IT-ALLERGAN-1000087626

PATIENT
  Age: 60 Year
  Sex: Male

DRUGS (8)
  1. ASENAPINE MALEATE UNK [Suspect]
     Active Substance: ASENAPINE MALEATE
     Dosage: 10 MG, QD
     Route: 048
     Dates: start: 20150410
  2. ASENAPINE MALEATE UNK [Suspect]
     Active Substance: ASENAPINE MALEATE
     Dosage: 10 MG, QD
     Route: 048
     Dates: start: 20130318, end: 20140322
  3. ASENAPINE MALEATE UNK [Suspect]
     Active Substance: ASENAPINE MALEATE
     Dosage: 10 MG, Q WEEK
     Route: 048
     Dates: start: 20141115
  4. AKINETON [Concomitant]
     Active Substance: BIPERIDEN HYDROCHLORIDE
     Indication: PRODUCT USED FOR UNKNOWN INDICATION
     Dosage: UNK
     Dates: start: 20130318
  5. DENIBAN [Concomitant]
     Active Substance: AMISULPRIDE
     Indication: PRODUCT USED FOR UNKNOWN INDICATION
     Dosage: 50 MG, QD
     Dates: start: 20141115
  6. ASENAPINE MALEATE UNK [Suspect]
     Active Substance: ASENAPINE MALEATE
     Dosage: 10 MG, QD
     Route: 048
     Dates: start: 20150410
  7. ASENAPINE MALEATE UNK [Suspect]
     Active Substance: ASENAPINE MALEATE
     Indication: BIPOLAR DISORDER
     Dosage: 5 MG, QD
     Route: 048
     Dates: start: 20130213, end: 201303
  8. ASENAPINE MALEATE UNK [Suspect]
     Active Substance: ASENAPINE MALEATE
     Indication: GAMBLING DISORDER
     Dosage: 10 MG, QD
     Route: 048
     Dates: start: 201601

REACTIONS (19)
  - Psychotic disorder [Unknown]
  - Sedation [Unknown]
  - Headache [Unknown]
  - Drug ineffective [Unknown]
  - Tendon disorder [Unknown]
  - Off label use [Unknown]
  - Insomnia [Unknown]
  - Schizophrenia [Unknown]
  - Blood test abnormal [Unknown]
  - Gambling disorder [Unknown]
  - Urinary tract disorder [Unknown]
  - Drug dependence [Unknown]
  - Fibrosis [Unknown]
  - Cognitive disorder [Unknown]
  - Eye disorder [Unknown]
  - Weight increased [Unknown]
  - Disability [Unknown]
  - Amnesia [Unknown]
  - Headache [Unknown]

NARRATIVE: CASE EVENT DATE: 201303
